FAERS Safety Report 4290106-2 (Version None)
Quarter: 2004Q1

REPORT INFORMATION
  Report Type: 
  Country: None (occurrence: None)
  Receive Date: 20040206
  Receipt Date: 20040127
  Transmission Date: 20041129
  Serious: Yes (Hospitalization)
  Sender: FDA-Public Use
  Company Number: HQWYE575627JAN04

PATIENT
  Age: 61 Year
  Sex: Male

DRUGS (1)
  1. CORDARONE [Suspect]
     Indication: ATRIAL FIBRILLATION
     Dosage: ORAL
     Route: 048
     Dates: start: 20000101, end: 20030101

REACTIONS (6)
  - CARDIAC FAILURE [None]
  - CUSHING'S SYNDROME [None]
  - HYPERTHYROIDISM [None]
  - POST PROCEDURAL COMPLICATION [None]
  - QUADRIPARESIS [None]
  - WEIGHT DECREASED [None]
